FAERS Safety Report 23725438 (Version 1)
Quarter: 2024Q2

REPORT INFORMATION
  Report Type: Spontaneous
  Country: FR (occurrence: FR)
  Receive Date: 20240410
  Receipt Date: 20240410
  Transmission Date: 20240715
  Serious: Yes (Death, Other)
  Sender: FDA-Public Use
  Company Number: FR-CELLTRION INC.-2024FR008197

PATIENT

DRUGS (1)
  1. RITUXIMAB [Suspect]
     Active Substance: RITUXIMAB
     Indication: Chronic lymphocytic leukaemia stage 3
     Dosage: 375 MG/M2
     Route: 042
     Dates: start: 20210223, end: 20210223

REACTIONS (3)
  - Multiple organ dysfunction syndrome [Fatal]
  - Respiratory distress [Fatal]
  - Asthma [Fatal]

NARRATIVE: CASE EVENT DATE: 20210223
